FAERS Safety Report 21870491 (Version 2)
Quarter: 2023Q1

REPORT INFORMATION
  Report Type: Spontaneous
  Country: US (occurrence: US)
  Receive Date: 20230117
  Receipt Date: 20230130
  Transmission Date: 20230418
  Serious: No
  Sender: FDA-Public Use
  Company Number: US-LUPIN PHARMACEUTICALS INC.-2023-00214

PATIENT

DRUGS (4)
  1. ALBUTEROL SULFATE [Suspect]
     Active Substance: ALBUTEROL SULFATE
     Indication: Asthma
     Dosage: UNK, QID (8 DOSES, 4 TIMES A DAY)
     Dates: start: 20221221
  2. BENAZEPRIL [Concomitant]
     Active Substance: BENAZEPRIL HYDROCHLORIDE
     Indication: Hypertension
     Dosage: UNK, PRN
     Route: 065
  3. BUDESONIDE [Concomitant]
     Active Substance: BUDESONIDE
     Indication: Asthma
     Dosage: UNK, PRN
     Route: 065
  4. FORMOTEROL [Concomitant]
     Active Substance: FORMOTEROL
     Indication: Asthma
     Dosage: UNK, PRN

REACTIONS (3)
  - Drug dose omission by device [Unknown]
  - Device delivery system issue [Unknown]
  - No adverse event [Unknown]
